FAERS Safety Report 11176543 (Version 1)
Quarter: 2015Q2

REPORT INFORMATION
  Report Type: Spontaneous
  Country: BR (occurrence: BR)
  Receive Date: 20150610
  Receipt Date: 20150610
  Transmission Date: 20150821
  Serious: Yes (Other)
  Sender: FDA-Public Use
  Company Number: BR-ROCHE-1556762

PATIENT
  Sex: Male
  Weight: 91 kg

DRUGS (13)
  1. HYDROCHLOROTHIAZIDE. [Concomitant]
     Active Substance: HYDROCHLOROTHIAZIDE
     Indication: FLUID RETENTION
     Dosage: 1 TABLET IN THE MORNING; EVERY DAY
     Route: 065
     Dates: start: 2000
  2. NEULEPTIL [Suspect]
     Active Substance: PERICIAZINE
     Indication: PRODUCT USED FOR UNKNOWN INDICATION
     Route: 065
  3. RIVOTRIL [Suspect]
     Active Substance: CLONAZEPAM
     Indication: TREMOR
     Dosage: 30 TABLETS, 1 TABLET A NIGHT.
     Route: 065
  4. RIVOTRIL [Suspect]
     Active Substance: CLONAZEPAM
     Indication: HEADACHE
     Dosage: 1 TABLET AT NIGHT
     Route: 065
     Dates: start: 2011
  5. RIVOTRIL [Suspect]
     Active Substance: CLONAZEPAM
     Indication: RESTLESS LEGS SYNDROME
  6. FLUOXETINE [Suspect]
     Active Substance: FLUOXETINE\FLUOXETINE HYDROCHLORIDE
     Indication: PRODUCT USED FOR UNKNOWN INDICATION
     Route: 065
  7. LOSARTAN [Concomitant]
     Active Substance: LOSARTAN
     Indication: HYPERTENSION
     Dosage: 1 TABLET IN THE MORNING AND 1 TABLET AT NIGHT
     Route: 065
     Dates: start: 2000
  8. RIVOTRIL [Suspect]
     Active Substance: CLONAZEPAM
     Indication: MUSCLE SPASMS
     Route: 048
     Dates: start: 20080905
  9. GLIBENCLAMIDE [Concomitant]
     Active Substance: GLYBURIDE
  10. RIVOTRIL [Suspect]
     Active Substance: CLONAZEPAM
     Indication: MENTAL DISORDER
  11. HOMEOPATHIC FORMULA [Concomitant]
     Route: 048
  12. RIVOTRIL [Suspect]
     Active Substance: CLONAZEPAM
     Indication: HYPOAESTHESIA
  13. NPH INSULIN HUMAN [Concomitant]
     Indication: DIABETES MELLITUS
     Dosage: 40 IU IN THE MORNING AND 40 IU AT NIGHT
     Route: 065
     Dates: start: 1999

REACTIONS (16)
  - Neuralgia [Unknown]
  - Weight decreased [Unknown]
  - Muscle atrophy [Recovered/Resolved]
  - Increased appetite [Unknown]
  - Nerve degeneration [Recovered/Resolved]
  - Blood pressure increased [Unknown]
  - Blood pressure decreased [Unknown]
  - Gait disturbance [Unknown]
  - Pain in extremity [Unknown]
  - Drug ineffective [Unknown]
  - Somnolence [Unknown]
  - Inappropriate schedule of drug administration [Unknown]
  - Anxiety [Recovering/Resolving]
  - Movement disorder [Recovered/Resolved]
  - Musculoskeletal stiffness [Unknown]
  - Weight increased [Unknown]

NARRATIVE: CASE EVENT DATE: 2013
